FAERS Safety Report 5583898-3 (Version None)
Quarter: 2008Q1

REPORT INFORMATION
  Report Type: 
  Country: None (occurrence: None)
  Receive Date: 20080102
  Receipt Date: 20080102
  Transmission Date: 20080703
  Serious: Yes (Life-Threatening, Hospitalization)
  Sender: FDA-Public Use
  Company Number: None

PATIENT
  Age: 81 Year
  Sex: Male
  Weight: 72.5755 kg

DRUGS (2)
  1. SIMVASTATIN 80 MG US VET ADM NDC#00093715698 [Suspect]
     Indication: CORONARY ARTERY DISEASE
     Dosage: 80 MG 1XDAILY PO
     Route: 048
     Dates: start: 20020615, end: 20071030
  2. NIASPAN [Suspect]
     Indication: CORONARY ARTERY DISEASE
     Dosage: 1000 MG 3XDAILY PO
     Route: 048
     Dates: start: 20051015, end: 20071025

REACTIONS (7)
  - CARDIAC FAILURE CONGESTIVE [None]
  - DEHYDRATION [None]
  - DIARRHOEA [None]
  - OEDEMA [None]
  - PLEURISY [None]
  - PNEUMONIA [None]
  - RHABDOMYOLYSIS [None]
